FAERS Safety Report 9779997 (Version 1)
Quarter: 2013Q4

REPORT INFORMATION
  Report Type: Spontaneous
  Country: GB (occurrence: GB)
  Receive Date: 20131223
  Receipt Date: 20131223
  Transmission Date: 20140711
  Serious: Yes (Other)
  Sender: FDA-Public Use
  Company Number: GB-ABBVIE-13P-167-1182780-00

PATIENT
  Sex: Male

DRUGS (1)
  1. EPILIM CHRONO [Suspect]
     Indication: EPILEPSY
     Route: 048

REACTIONS (2)
  - Convulsion [Unknown]
  - Drug dose omission [Unknown]
